FAERS Safety Report 10268735 (Version 1)
Quarter: 2014Q2

REPORT INFORMATION
  Report Type: Spontaneous
  Country: FR (occurrence: FR)
  Receive Date: 20140630
  Receipt Date: 20140630
  Transmission Date: 20141212
  Serious: Yes (Hospitalization, Other)
  Sender: FDA-Public Use
  Company Number: FR-BAXTER-2014BAX033350

PATIENT
  Age: 13 Year
  Sex: Male

DRUGS (8)
  1. UROMITEXAN 1 G/10 ML, SOLUTION INJECTABLE POUR PERFUSION EN FLACON [Suspect]
     Indication: PRODUCT USED FOR UNKNOWN INDICATION
     Dosage: AT DAY 37
     Route: 065
     Dates: start: 20140113, end: 20140113
  2. ARACYTINE [Suspect]
     Indication: PRECURSOR T-LYMPHOBLASTIC LYMPHOMA/LEUKAEMIA
     Dosage: AT DAY 38
     Route: 042
     Dates: start: 20140114, end: 20140114
  3. ARACYTINE [Suspect]
     Dosage: AT DAY 41
     Route: 042
     Dates: start: 20140117
  4. ARACYTINE [Suspect]
     Route: 042
     Dates: start: 20140128
  5. VINCRISTINE TEVA [Suspect]
     Indication: PRECURSOR T-LYMPHOBLASTIC LYMPHOMA/LEUKAEMIA
     Dosage: AT DAY 27
     Route: 042
     Dates: start: 20140103, end: 20140103
  6. CERUBIDINE [Suspect]
     Indication: PRECURSOR T-LYMPHOBLASTIC LYMPHOMA/LEUKAEMIA
     Dosage: AT DAY 27
     Route: 042
     Dates: start: 20140103, end: 20140103
  7. METHOTREXATE MYLAN [Concomitant]
     Indication: PRECURSOR T-LYMPHOBLASTIC LYMPHOMA/LEUKAEMIA
     Dosage: AT DAY 34
     Route: 037
     Dates: start: 20140110, end: 20140110
  8. ENDOXAN 1000 MG, POUDRE POUR SOLUTION INJECTABLE [Suspect]
     Indication: PRECURSOR T-LYMPHOBLASTIC LYMPHOMA/LEUKAEMIA
     Dosage: AT DAY 37
     Route: 042
     Dates: start: 20140113, end: 20140113

REACTIONS (5)
  - Agranulocytosis [Recovered/Resolved]
  - Anaemia [Recovered/Resolved]
  - Abdominal pain [Unknown]
  - Diarrhoea [Unknown]
  - Urinary tract infection pseudomonal [Unknown]
